FAERS Safety Report 23824983 (Version 1)
Quarter: 2024Q2

REPORT INFORMATION
  Report Type: Spontaneous
  Country: DE (occurrence: DE)
  Receive Date: 20240507
  Receipt Date: 20240507
  Transmission Date: 20240716
  Serious: Yes (Hospitalization)
  Sender: FDA-Public Use
  Company Number: DE-BAYER-2024A065625

PATIENT
  Age: 50 Year
  Sex: Male

DRUGS (2)
  1. GADOBUTROL [Suspect]
     Active Substance: GADOBUTROL
     Indication: Magnetic resonance imaging head
     Dosage: UNK UNK, ONCE
  2. GADOBUTROL [Suspect]
     Active Substance: GADOBUTROL
     Indication: Glioblastoma

REACTIONS (1)
  - Acute generalised exanthematous pustulosis [Recovered/Resolved]
